FAERS Safety Report 14873607 (Version 2)
Quarter: 2018Q2

REPORT INFORMATION
  Report Type: Spontaneous
  Country: US (occurrence: US)
  Receive Date: 20180510
  Receipt Date: 20180528
  Transmission Date: 20180711
  Serious: No
  Sender: FDA-Public Use
  Company Number: US-JNJFOC-20180436533

PATIENT
  Age: 24 Year
  Sex: Female

DRUGS (2)
  1. DEPAKOTE [Concomitant]
     Active Substance: DIVALPROEX SODIUM
     Route: 065
  2. RISPERDAL CONSTA [Suspect]
     Active Substance: RISPERIDONE
     Indication: SCHIZOPHRENIA
     Route: 030

REACTIONS (2)
  - Device malfunction [Unknown]
  - Drug dose omission [Unknown]

NARRATIVE: CASE EVENT DATE: 20180427
